FAERS Safety Report 25485634 (Version 1)
Quarter: 2025Q2

REPORT INFORMATION
  Report Type: Spontaneous
  Country: US (occurrence: US)
  Receive Date: 20250626
  Receipt Date: 20250626
  Transmission Date: 20250717
  Serious: No
  Sender: INSUD PHARMA
  Company Number: US-INSUD PHARMA-2506US04961

PATIENT

DRUGS (1)
  1. SLYND [Suspect]
     Active Substance: DROSPIRENONE
     Indication: Contraception
     Route: 048
     Dates: start: 2024, end: 20250612

REACTIONS (2)
  - Abnormal withdrawal bleeding [Not Recovered/Not Resolved]
  - Maternal exposure during breast feeding [Unknown]

NARRATIVE: CASE EVENT DATE: 20250612
